FAERS Safety Report 12785288 (Version 1)
Quarter: 2016Q3

REPORT INFORMATION
  Report Type: Spontaneous
  Country: NL (occurrence: NL)
  Receive Date: 20160927
  Receipt Date: 20160927
  Transmission Date: 20161109
  Serious: Yes (Other)
  Sender: FDA-Public Use
  Company Number: NL-ALEXION-A201607141

PATIENT
  Age: 2 Month
  Sex: Male
  Weight: 4.5 kg

DRUGS (1)
  1. KANUMA [Suspect]
     Active Substance: SEBELIPASE ALFA
     Indication: LYSOSOMAL ACID LIPASE DEFICIENCY
     Dosage: 1 MG/KG, QW
     Route: 042

REACTIONS (4)
  - Ascites [Unknown]
  - Chitotriosidase increased [Unknown]
  - Functional gastrointestinal disorder [Unknown]
  - Alanine aminotransferase increased [Unknown]
